FAERS Safety Report 18278753 (Version 1)
Quarter: 2020Q3

REPORT INFORMATION
  Report Type: Spontaneous
  Country: US (occurrence: US)
  Receive Date: 20200917
  Receipt Date: 20200917
  Transmission Date: 20201103
  Serious: Yes (Life-Threatening, Hospitalization, Other)
  Sender: FDA-Public Use
  Company Number: US-SLATE RUN PHARMACEUTICALS-20US000282

PATIENT

DRUGS (18)
  1. CEFTRIAXONE. [Concomitant]
     Active Substance: CEFTRIAXONE
     Indication: EXPOSURE DURING PREGNANCY
     Dosage: UNK
     Route: 063
  2. REMDESIVIR. [Concomitant]
     Active Substance: REMDESIVIR
     Indication: EXPOSURE DURING PREGNANCY
     Dosage: UNK
     Route: 063
  3. CEFTRIAXONE. [Concomitant]
     Active Substance: CEFTRIAXONE
     Indication: EXPOSURE VIA BREAST MILK
     Route: 064
  4. TOCILIZUMAB. [Concomitant]
     Active Substance: TOCILIZUMAB
     Indication: EXPOSURE VIA BREAST MILK
     Route: 064
  5. HEPARIN [Concomitant]
     Active Substance: HEPARIN SODIUM
     Indication: EXPOSURE VIA BREAST MILK
     Route: 064
  6. ENOXAPARIN [Concomitant]
     Active Substance: ENOXAPARIN
     Indication: EXPOSURE VIA BREAST MILK
     Route: 064
  7. HYDROXYCHLOROQUINE [Concomitant]
     Active Substance: HYDROXYCHLOROQUINE
     Indication: EXPOSURE VIA BREAST MILK
     Route: 064
  8. HYDROXYCHLOROQUINE [Concomitant]
     Active Substance: HYDROXYCHLOROQUINE
     Indication: EXPOSURE DURING PREGNANCY
     Dosage: UNK
     Route: 063
  9. ASCORBIC ACID. [Concomitant]
     Active Substance: ASCORBIC ACID
     Indication: EXPOSURE DURING PREGNANCY
     Dosage: UNK
     Route: 063
  10. REMDESIVIR. [Concomitant]
     Active Substance: REMDESIVIR
     Indication: EXPOSURE VIA BREAST MILK
     Route: 064
  11. HEPARIN [Concomitant]
     Active Substance: HEPARIN SODIUM
     Indication: EXPOSURE DURING PREGNANCY
     Dosage: UNK
     Route: 063
  12. AZITHROMYCIN USP [Suspect]
     Active Substance: AZITHROMYCIN
     Indication: EXPOSURE DURING PREGNANCY
     Dosage: UNK
     Route: 063
  13. AZITHROMYCIN USP [Suspect]
     Active Substance: AZITHROMYCIN
     Indication: EXPOSURE VIA BREAST MILK
     Dosage: UNK
     Route: 064
  14. OXYGEN. [Concomitant]
     Active Substance: OXYGEN
     Indication: EXPOSURE DURING PREGNANCY
     Dosage: UNK
     Route: 063
  15. TOCILIZUMAB. [Concomitant]
     Active Substance: TOCILIZUMAB
     Indication: EXPOSURE DURING PREGNANCY
     Dosage: UNK
     Route: 063
  16. OXYGEN. [Concomitant]
     Active Substance: OXYGEN
     Indication: EXPOSURE VIA BREAST MILK
     Dosage: UNK
     Route: 064
  17. ASCORBIC ACID. [Concomitant]
     Active Substance: ASCORBIC ACID
     Indication: EXPOSURE VIA BREAST MILK
     Route: 064
  18. ENOXAPARIN [Concomitant]
     Active Substance: ENOXAPARIN
     Indication: EXPOSURE DURING PREGNANCY
     Dosage: UNK
     Route: 063

REACTIONS (8)
  - Infantile apnoea [Recovering/Resolving]
  - Apgar score low [Recovered/Resolved]
  - Foetal exposure during pregnancy [Unknown]
  - Premature baby [Recovering/Resolving]
  - Temperature regulation disorder [Recovering/Resolving]
  - Neonatal respiratory distress [Recovering/Resolving]
  - Poor feeding infant [Recovering/Resolving]
  - Exposure via breast milk [Unknown]
